FAERS Safety Report 16451203 (Version 1)
Quarter: 2019Q2

REPORT INFORMATION
  Report Type: Report from Study
  Country: DE (occurrence: DE)
  Receive Date: 20190619
  Receipt Date: 20190619
  Transmission Date: 20190711
  Serious: Yes (Hospitalization)
  Sender: FDA-Public Use
  Company Number: DE-PFIZER INC-2019254897

PATIENT
  Age: 65 Year
  Sex: Female
  Weight: 72 kg

DRUGS (8)
  1. PACLITAXEL. [Suspect]
     Active Substance: PACLITAXEL
     Indication: OVARIAN CANCER
     Dosage: 318 MG, EVERY 3 WEEKS, PHARMACEUTICAL FORM: INFUSION
     Route: 042
     Dates: start: 20120618, end: 20120618
  2. BEVACIZUMAB. [Suspect]
     Active Substance: BEVACIZUMAB
     Dosage: 1035 MG, UNK, PHARMACEUTICAL FORM: INFUSION
     Route: 042
     Dates: start: 20121001, end: 20121001
  3. CARBOPLATIN. [Suspect]
     Active Substance: CARBOPLATIN
     Indication: OVARIAN CANCER
     Dosage: 660 MG, EVERY 3 WEEKS, PHARMACEUTICAL FORM: INFUSION
     Route: 042
     Dates: start: 20120618, end: 20120618
  4. PACLITAXEL. [Suspect]
     Active Substance: PACLITAXEL
     Dosage: 318 MG, UNK, PHARMACEUTICAL FORM: INFUSION
     Route: 042
     Dates: start: 20121001, end: 20121001
  5. CARBOPLATIN. [Suspect]
     Active Substance: CARBOPLATIN
     Dosage: 555 MG, UNK,  PHARMACEUTICAL FORM: INFUSION
     Route: 042
     Dates: start: 20121001, end: 20121001
  6. BEVACIZUMAB. [Suspect]
     Active Substance: BEVACIZUMAB
     Indication: OVARIAN CANCER
     Dosage: 1080 MG, EVERY 3 WEEKS, PHARMACEUTICAL FORM: INFUSION
     Route: 042
     Dates: start: 20120709, end: 20120709
  7. TAMBOCOR [Concomitant]
     Active Substance: FLECAINIDE ACETATE
     Indication: HYPERTENSION
     Dosage: LAST DOSE PRIOR TO THE EVENT : 09OCT2012
     Route: 048
  8. FRAXIPARINE [Concomitant]
     Active Substance: NADROPARIN CALCIUM
     Indication: PROPHYLAXIS
     Dosage: LAST DOSE PRIOR TO THE EVENT : 09OCT2012
     Route: 058

REACTIONS (1)
  - Herpes zoster oticus [Unknown]

NARRATIVE: CASE EVENT DATE: 20121009
